FAERS Safety Report 6200498-2 (Version None)
Quarter: 2009Q2

REPORT INFORMATION
  Report Type: 
  Country: None (occurrence: None)
  Receive Date: 20090522
  Receipt Date: 20090512
  Transmission Date: 20091009
  Serious: Yes (Hospitalization, Other)
  Sender: FDA-Public Use
  Company Number: US-PFIZER INC-2009194698

PATIENT
  Age: 87 Year
  Sex: Female
  Weight: 45.351 kg

DRUGS (5)
  1. ZOLOFT [Suspect]
     Indication: AFFECTIVE DISORDER
     Dosage: 25 MG, 1X/DAY
     Route: 048
     Dates: start: 20090224
  2. NEBIVOLOL HYDROCHLORIDE [Suspect]
     Indication: CARDIAC FAILURE CONGESTIVE
     Dosage: 5 MG, 1X/DAY
     Route: 048
     Dates: start: 20090226, end: 20090201
  3. NEBIVOLOL HYDROCHLORIDE [Suspect]
     Indication: TACHYCARDIA
  4. LASIX [Concomitant]
  5. IMDUR [Concomitant]

REACTIONS (2)
  - BRADYCARDIA [None]
  - DRUG INTERACTION [None]
